FAERS Safety Report 8814135 (Version 1)
Quarter: 2012Q4

REPORT INFORMATION
  Report Type: 
  Country: US (occurrence: US)
  Receive Date: 20120928
  Receipt Date: 20120928
  Transmission Date: 20130627
  Serious: No
  Sender: FDA-Public Use
  Company Number: US-JNJFOC-20120908550

PATIENT
  Age: 53 Year
  Sex: Female
  Weight: 99.79 kg

DRUGS (6)
  1. SANDOZ FENTANYL TRANSDERMAL SYSTEM [Suspect]
     Indication: FALL
     Route: 062
     Dates: start: 20120912, end: 20120913
  2. SANDOZ FENTANYL TRANSDERMAL SYSTEM [Suspect]
     Indication: ARTHRALGIA
     Route: 062
     Dates: start: 20120912, end: 20120913
  3. HYDROCODONE [Concomitant]
     Indication: FALL
     Dosage: 15 mg and 7.5 mg
     Route: 048
     Dates: start: 2006
  4. HYDROCODONE [Concomitant]
     Indication: ARTHRALGIA
     Dosage: 15 mg and 7.5 mg
     Route: 048
     Dates: start: 2006
  5. CYMBALTA [Concomitant]
     Indication: NEURALGIA
     Dosage: 120 mg - 60 mg
     Route: 048
     Dates: start: 2006
  6. GABAPENTIN [Concomitant]
     Indication: NEURALGIA
     Route: 048
     Dates: start: 2006

REACTIONS (2)
  - Drug dose omission [Recovered/Resolved]
  - Product quality issue [Unknown]
